FAERS Safety Report 25213366 (Version 2)
Quarter: 2025Q2

REPORT INFORMATION
  Report Type: Other
  Country: GB (occurrence: GB)
  Receive Date: 20250418
  Receipt Date: 20250418
  Transmission Date: 20250717
  Serious: Yes (Other)
  Sender: STRIDES
  Company Number: None

PATIENT
  Age: 35 Year
  Sex: Female
  Weight: 106 kg

DRUGS (4)
  1. GABAPENTIN [Suspect]
     Active Substance: GABAPENTIN
     Indication: Adverse drug reaction
     Route: 065
     Dates: start: 20250325
  2. TORADOL [Concomitant]
     Active Substance: KETOROLAC TROMETHAMINE
     Indication: Adverse drug reaction
     Route: 065
     Dates: start: 20250109
  3. HYDROMORPHONE [Concomitant]
     Active Substance: HYDROMORPHONE
     Indication: Adverse drug reaction
     Route: 065
     Dates: start: 20250328, end: 20250329
  4. TYLENOL [Concomitant]
     Active Substance: ACETAMINOPHEN
     Indication: Adverse drug reaction
     Route: 065
     Dates: start: 20250109

REACTIONS (4)
  - Asthenopia [Recovering/Resolving]
  - Headache [Not Recovered/Not Resolved]
  - Somnolence [Not Recovered/Not Resolved]
  - Vision blurred [Unknown]

NARRATIVE: CASE EVENT DATE: 20250402
